FAERS Safety Report 5981476-5 (Version None)
Quarter: 2008Q4

REPORT INFORMATION
  Report Type: 
  Country: None (occurrence: None)
  Receive Date: 20081205
  Receipt Date: 20081202
  Transmission Date: 20090506
  Serious: Yes (Hospitalization)
  Sender: FDA-Public Use
  Company Number: US-ELI_LILLY_AND_COMPANY-US200812000976

PATIENT
  Sex: Female

DRUGS (2)
  1. HUMALOG [Suspect]
  2. LANTUS [Concomitant]

REACTIONS (8)
  - BLOOD GLUCOSE DECREASED [None]
  - BURNING SENSATION [None]
  - DIZZINESS [None]
  - DYSGEUSIA [None]
  - HYPERHIDROSIS [None]
  - NAUSEA [None]
  - PALPITATIONS [None]
  - VENOUS OPERATION [None]
